FAERS Safety Report 6289761-7 (Version None)
Quarter: 2009Q3

REPORT INFORMATION
  Report Type: 
  Country: None (occurrence: None)
  Receive Date: 20090730
  Receipt Date: 20080811
  Transmission Date: 20100115
  Serious: No
  Sender: FDA-Public Use
  Company Number: US-BRISTOL-MYERS SQUIBB COMPANY-14262729

PATIENT
  Age: 71 Year
  Sex: Female
  Weight: 63 kg

DRUGS (8)
  1. COUMADIN [Suspect]
     Dosage: STOPPED ON 01JUL08 AND RESTARTED ON 03JUL08.
  2. ASPIRIN [Suspect]
     Indication: PROPHYLAXIS
     Dosage: BOTTLE COUNT 300
     Route: 048
     Dates: start: 20060101
  3. LEVOXYL [Concomitant]
  4. ESTROGEN [Concomitant]
  5. FORTEO [Concomitant]
     Dosage: FORM = INJ
  6. NEXIUM [Concomitant]
  7. OS-CAL [Concomitant]
  8. CENTRUM [Concomitant]
     Dosage: CENTRUM CARDIO MULTIVITAMIN

REACTIONS (1)
  - INTERNATIONAL NORMALISED RATIO INCREASED [None]
